FAERS Safety Report 20703384 (Version 1)
Quarter: 2022Q2

REPORT INFORMATION
  Report Type: Spontaneous
  Country: FR (occurrence: FR)
  Receive Date: 20220413
  Receipt Date: 20220413
  Transmission Date: 20220721
  Serious: Yes (Hospitalization, Other)
  Sender: FDA-Public Use
  Company Number: FR-AFSSAPS-GR20220941

PATIENT
  Age: 61 Year
  Sex: Male
  Weight: 148.5 kg

DRUGS (2)
  1. ATENOLOL [Suspect]
     Active Substance: ATENOLOL
     Indication: Product used for unknown indication
     Dosage: 12 DOSAGE FORM(50 MG)
     Route: 048
     Dates: start: 20220311, end: 20220311
  2. ALCOHOL [Suspect]
     Active Substance: ALCOHOL
     Indication: Poisoning deliberate
     Dosage: UNK(NP)
     Route: 048
     Dates: start: 20220311, end: 20220311

REACTIONS (2)
  - Bradycardia [Recovered/Resolved]
  - Intentional overdose [Recovered/Resolved]

NARRATIVE: CASE EVENT DATE: 20220311
